FAERS Safety Report 4824233-5 (Version None)
Quarter: 2005Q4

REPORT INFORMATION
  Report Type: 
  Country: None (occurrence: None)
  Receive Date: 20051108
  Receipt Date: 20051102
  Transmission Date: 20060501
  Serious: Yes (Other)
  Sender: FDA-Public Use
  Company Number: EM2005-0571

PATIENT
  Sex: 0

DRUGS (2)
  1. PROLEUKIN [Suspect]
     Indication: RENAL CELL CARCINOMA STAGE UNSPECIFIED
  2. GM-CSF (GRANULOCYTE  MACROPHAGE COLONY STIM FACTOR) [Suspect]
     Indication: RENAL CELL CARCINOMA STAGE UNSPECIFIED
     Dosage: 125 MCG, SUBCUTAN.
     Route: 058

REACTIONS (1)
  - ATRIAL FIBRILLATION [None]
